FAERS Safety Report 11679362 (Version 2)
Quarter: 2015Q4

REPORT INFORMATION
  Report Type: Spontaneous
  Country: US (occurrence: US)
  Receive Date: 20151027
  Receipt Date: 20151104
  Transmission Date: 20160304
  Serious: No
  Sender: FDA-Public Use
  Company Number: US-ELI_LILLY_AND_COMPANY-US201011003549

PATIENT
  Sex: Female
  Weight: 56.69 kg

DRUGS (12)
  1. RYTHMOL [Concomitant]
     Active Substance: PROPAFENONE HYDROCHLORIDE
  2. ASA [Concomitant]
     Active Substance: ASPIRIN
  3. LIPITOR [Concomitant]
     Active Substance: ATORVASTATIN CALCIUM
  4. MOTRIN [Concomitant]
     Active Substance: IBUPROFEN
  5. SYNTHROID [Concomitant]
     Active Substance: LEVOTHYROXINE SODIUM
  6. CITRACAL + D [Concomitant]
     Active Substance: CALCIUM CITRATE\VITAMIN D
  7. MULTIVIT [Concomitant]
     Active Substance: VITAMINS
  8. FORTEO [Suspect]
     Active Substance: TERIPARATIDE
     Indication: OSTEOPOROSIS
     Dosage: 20 UG, DAILY (1/D)
     Route: 058
     Dates: start: 20100312, end: 20100901
  9. INDERAL [Concomitant]
     Active Substance: PROPRANOLOL HYDROCHLORIDE
  10. PLAVIX [Concomitant]
     Active Substance: CLOPIDOGREL BISULFATE
  11. IMURAN [Concomitant]
     Active Substance: AZATHIOPRINE
  12. VITAMIN D [Concomitant]
     Active Substance: CHOLECALCIFEROL

REACTIONS (1)
  - Hallucination, visual [Unknown]
